FAERS Safety Report 7282344-1 (Version None)
Quarter: 2011Q1

REPORT INFORMATION
  Report Type: 
  Country: None (occurrence: None)
  Receive Date: 20110209
  Receipt Date: 20110128
  Transmission Date: 20110831
  Serious: Yes (Hospitalization, Other)
  Sender: FDA-Public Use
  Company Number: KR-ELI_LILLY_AND_COMPANY-KR201101007155

PATIENT
  Age: 58 Year
  Sex: Male
  Weight: 59 kg

DRUGS (2)
  1. HUMALOG MIX 75/25 [Suspect]
     Dosage: 18U MORNING, 6U EVENING
     Route: 058
     Dates: start: 20101106
  2. HUMALOG MIX 75/25 [Suspect]
     Dosage: 6 U, EACH EVENING
     Route: 058
     Dates: start: 20101106

REACTIONS (1)
  - HAEMATOCHEZIA [None]
